FAERS Safety Report 26037083 (Version 1)
Quarter: 2025Q4

REPORT INFORMATION
  Report Type: Spontaneous
  Country: EG (occurrence: EG)
  Receive Date: 20251112
  Receipt Date: 20251112
  Transmission Date: 20260117
  Serious: Yes (Other)
  Sender: PFIZER
  Company Number: EG-PFIZER INC-PV202500032243

PATIENT
  Age: 2 Day
  Sex: Female
  Weight: 2 kg

DRUGS (1)
  1. UNASYN [Suspect]
     Active Substance: AMPICILLIN SODIUM\SULBACTAM SODIUM
     Indication: Sepsis
     Dosage: UNK
     Route: 042
     Dates: start: 20241129, end: 20241205

REACTIONS (1)
  - Thrombocytopenia neonatal [Not Recovered/Not Resolved]

NARRATIVE: CASE EVENT DATE: 20241202
